FAERS Safety Report 19423030 (Version 1)
Quarter: 2021Q2

REPORT INFORMATION
  Report Type: Spontaneous
  Country: US (occurrence: US)
  Receive Date: 20210616
  Receipt Date: 20210616
  Transmission Date: 20210717
  Serious: Yes (Other)
  Sender: FDA-Public Use
  Company Number: US-PERRIGO-19US019151

PATIENT
  Age: 61 Year
  Sex: Female
  Weight: 57.6 kg

DRUGS (17)
  1. ZANTAC 150 (RANITIDINE HYDROCHLORIDE) [Concomitant]
     Active Substance: RANITIDINE HYDROCHLORIDE
     Indication: PRODUCT USED FOR UNKNOWN INDICATION
     Dosage: UNK, UNK
     Route: 065
     Dates: start: 2015, end: 2018
  2. BENADRYL (ACRIVASTINE) [Concomitant]
     Indication: PRODUCT USED FOR UNKNOWN INDICATION
     Dosage: UNK, UNK
     Route: 065
     Dates: start: 2018
  3. ESOMEPRAZOLE. [Suspect]
     Active Substance: ESOMEPRAZOLE MAGNESIUM
     Indication: PRODUCT USED FOR UNKNOWN INDICATION
     Dosage: UNK, UNK
     Route: 065
  4. LANSOPRAZOLE. [Suspect]
     Active Substance: LANSOPRAZOLE
     Indication: PRODUCT USED FOR UNKNOWN INDICATION
     Dosage: , UNKUNK
     Route: 065
  5. NEXIUM 24HR [Suspect]
     Active Substance: ESOMEPRAZOLE MAGNESIUM
     Indication: PRODUCT USED FOR UNKNOWN INDICATION
     Dosage: 20 MG, QD
     Route: 048
  6. NEXIUM [Suspect]
     Active Substance: ESOMEPRAZOLE MAGNESIUM
     Indication: GASTROOESOPHAGEAL REFLUX DISEASE
     Dosage: 40 MG, QD
     Route: 048
     Dates: start: 20060101, end: 20181231
  7. PREVACID [Suspect]
     Active Substance: LANSOPRAZOLE
     Indication: PRODUCT USED FOR UNKNOWN INDICATION
     Dosage: 40 MG, QD
     Route: 065
  8. PREVACID [Suspect]
     Active Substance: LANSOPRAZOLE
     Dosage: 30 MG, QD
     Route: 065
     Dates: start: 200101, end: 201812
  9. PRILOSEC OTC [Suspect]
     Active Substance: OMEPRAZOLE MAGNESIUM
     Indication: PRODUCT USED FOR UNKNOWN INDICATION
     Dosage: 20 MG, QD
     Route: 065
  10. MULTIVITAMIN [Concomitant]
     Active Substance: VITAMINS
     Indication: PRODUCT USED FOR UNKNOWN INDICATION
     Dosage: UNK, UNK
     Route: 065
     Dates: start: 2012
  11. PREVACID 24 HR [Suspect]
     Active Substance: LANSOPRAZOLE
     Indication: PRODUCT USED FOR UNKNOWN INDICATION
     Dosage: 15 MG, QD
     Route: 048
  12. OMEPRAZOLE                         /00661202/ [Suspect]
     Active Substance: OMEPRAZOLE SODIUM
     Indication: PRODUCT USED FOR UNKNOWN INDICATION
     Dosage: UNK, UNK
     Route: 065
  13. PANTOPRAZOLE                       /01263204/ [Suspect]
     Active Substance: PANTOPRAZOLE SODIUM
     Indication: PRODUCT USED FOR UNKNOWN INDICATION
     Dosage: UNK, UNK
     Route: 065
  14. PARACETAMOL [Concomitant]
     Active Substance: ACETAMINOPHEN
     Indication: PRODUCT USED FOR UNKNOWN INDICATION
     Route: 065
  15. PROTONIX [Suspect]
     Active Substance: PANTOPRAZOLE SODIUM
     Indication: GASTROOESOPHAGEAL REFLUX DISEASE
     Dosage: 40 MG, QD
     Route: 065
     Dates: start: 20170101, end: 20181231
  16. PRILOSEC [Suspect]
     Active Substance: OMEPRAZOLE MAGNESIUM
     Indication: GASTROOESOPHAGEAL REFLUX DISEASE
     Dosage: 40 MG, QD
     Route: 048
     Dates: start: 20060101, end: 201812
  17. PHENYLPROPANOLAMINE [Suspect]
     Active Substance: PHENYLPROPANOLAMINE
     Indication: RESTLESS LEGS SYNDROME
     Route: 065
     Dates: start: 2018

REACTIONS (3)
  - Renal injury [Unknown]
  - Chronic kidney disease [Recovered/Resolved]
  - Acute kidney injury [Unknown]

NARRATIVE: CASE EVENT DATE: 201802
